FAERS Safety Report 5210138-7 (Version None)
Quarter: 2006Q4

REPORT INFORMATION
  Report Type: 
  Country: None (occurrence: None)
  Receive Date: 20061103
  Receipt Date: 20060908
  Transmission Date: 20070319
  Serious: No
  Sender: FDA-Public Use
  Company Number: FACT0600346

PATIENT
  Age: 44 Year
  Sex: Male
  Weight: 99.8 kg

DRUGS (1)
  1. FACTIVE [Suspect]
     Indication: RESPIRATORY TRACT INFECTION BACTERIAL
     Dosage: 320 MG, QD, ORAL
     Route: 048
     Dates: start: 20060907, end: 20060907

REACTIONS (3)
  - FACE OEDEMA [None]
  - RASH GENERALISED [None]
  - VERTIGO [None]
